FAERS Safety Report 23949522 (Version 2)
Quarter: 2024Q4

REPORT INFORMATION
  Report Type: Report from Study
  Country: PK (occurrence: PK)
  Receive Date: 20240607
  Receipt Date: 20241018
  Transmission Date: 20250114
  Serious: No
  Sender: ROCHE
  Company Number: PK-ROCHE-3552260

PATIENT
  Age: 46 Year
  Sex: Female

DRUGS (7)
  1. RITUXIMAB [Suspect]
     Active Substance: RITUXIMAB
     Indication: Follicular lymphoma
     Route: 041
     Dates: start: 20240122
  2. RITUXIMAB [Suspect]
     Active Substance: RITUXIMAB
     Route: 041
  3. RITUXIMAB [Suspect]
     Active Substance: RITUXIMAB
     Route: 041
  4. RITUXIMAB [Suspect]
     Active Substance: RITUXIMAB
     Route: 041
  5. RITUXIMAB [Suspect]
     Active Substance: RITUXIMAB
     Route: 041
  6. RITUXIMAB [Suspect]
     Active Substance: RITUXIMAB
     Route: 041
  7. RITUXIMAB [Suspect]
     Active Substance: RITUXIMAB
     Route: 041

REACTIONS (2)
  - Follicular lymphoma [Unknown]
  - Weight fluctuation [Unknown]
